FAERS Safety Report 10227579 (Version 1)
Quarter: 2014Q2

REPORT INFORMATION
  Report Type: Spontaneous
  Country: ES (occurrence: ES)
  Receive Date: 20140610
  Receipt Date: 20140610
  Transmission Date: 20141212
  Serious: Yes (Other)
  Sender: FDA-Public Use
  Company Number: ES-ASTRAZENECA-2014SE38967

PATIENT
  Age: 83 Year
  Sex: Male

DRUGS (13)
  1. CRESTOR [Suspect]
     Indication: HYPERLIPIDAEMIA
     Route: 048
     Dates: start: 20140515, end: 20140526
  2. SINTROM [Interacting]
     Indication: ATRIAL FIBRILLATION
     Dates: start: 2014
  3. SINTROM [Interacting]
     Indication: ATRIAL FIBRILLATION
     Dates: start: 20140512, end: 20140526
  4. SINTROM [Interacting]
     Indication: ATRIAL FIBRILLATION
     Dosage: 3.5 MG PER WEEK
     Dates: start: 20140527
  5. CAFINITRINA [Concomitant]
     Dosage: LATENCY: 316 DAYS
     Route: 060
     Dates: start: 20130715
  6. CARDURAN NEO [Concomitant]
     Route: 065
     Dates: start: 20130614
  7. CARVEDILOL CINFA [Concomitant]
     Route: 065
     Dates: start: 20120521
  8. DIGOXIN TEOFARMA [Concomitant]
     Route: 065
     Dates: start: 20120314
  9. OMEPRAZOL [Concomitant]
     Route: 065
     Dates: start: 20131105
  10. SEGURIL [Concomitant]
     Route: 065
     Dates: start: 20120229
  11. SPIRIVA [Concomitant]
     Dosage: 18 MCG INHALATION POWDER 1 INHALER + 30 CAPSULES (TIOTROPIUM BROMIDE), LATENCY: 804 DAYS
     Route: 065
     Dates: start: 20120314
  12. SYMBICORT TURBUHALER [Concomitant]
     Dosage: 160 MCG/4.5 MCG/INHALATION INHALATION POWDER, ONE INHALER 120 DOSES, LATENCY: 804 DAYS
     Route: 055
     Dates: start: 20120314
  13. TELMISARTAN CINFA [Concomitant]
     Route: 065
     Dates: start: 20120314

REACTIONS (2)
  - Drug interaction [Unknown]
  - International normalised ratio increased [Recovering/Resolving]
